FAERS Safety Report 17108556 (Version 1)
Quarter: 2019Q4

REPORT INFORMATION
  Report Type: Spontaneous
  Country: JP (occurrence: JP)
  Receive Date: 20191203
  Receipt Date: 20191203
  Transmission Date: 20200122
  Serious: Yes (Hospitalization)
  Sender: FDA-Public Use
  Company Number: JP-PFIZER INC-2019510745

PATIENT

DRUGS (2)
  1. LASIX [Concomitant]
     Active Substance: FUROSEMIDE
     Dosage: 8 MG, UNK
     Route: 048
  2. ALDACTONE A 10% [Suspect]
     Active Substance: SPIRONOLACTONE
     Dosage: 80 MG, UNK
     Route: 048

REACTIONS (3)
  - Overdose [Unknown]
  - Product dispensing error [Unknown]
  - Respiratory symptom [Unknown]
